FAERS Safety Report 12223749 (Version 1)
Quarter: 2016Q1

REPORT INFORMATION
  Report Type: Report from Study
  Country: CO (occurrence: CO)
  Receive Date: 20160330
  Receipt Date: 20160330
  Transmission Date: 20160526
  Serious: Yes (Death, Hospitalization, Other)
  Sender: FDA-Public Use
  Company Number: CO-ABBVIE-16P-036-1594580-00

PATIENT
  Age: 60 Year
  Sex: Female
  Weight: 60 kg

DRUGS (1)
  1. ZEMPLAR [Suspect]
     Active Substance: PARICALCITOL
     Indication: HYPERPARATHYROIDISM SECONDARY
     Route: 048
     Dates: start: 20150724, end: 20160227

REACTIONS (3)
  - Cardio-respiratory arrest [Fatal]
  - Chest pain [Unknown]
  - Respiratory distress [Unknown]

NARRATIVE: CASE EVENT DATE: 20160310
